APPROVED DRUG PRODUCT: AMLODIPINE BESYLATE AND VALSARTAN
Active Ingredient: AMLODIPINE BESYLATE; VALSARTAN
Strength: EQ 10MG BASE;160MG
Dosage Form/Route: TABLET;ORAL
Application: A202713 | Product #002 | TE Code: AB
Applicant: ALEMBIC PHARMACEUTICALS LTD
Approved: Apr 3, 2015 | RLD: No | RS: No | Type: RX